FAERS Safety Report 18776930 (Version 2)
Quarter: 2021Q2

REPORT INFORMATION
  Report Type: Spontaneous
  Country: US (occurrence: US)
  Receive Date: 20210122
  Receipt Date: 20210416
  Transmission Date: 20210717
  Serious: Yes (Hospitalization)
  Sender: FDA-Public Use
  Company Number: US-TEVA-2021-US-1869752

PATIENT
  Age: 72 Year
  Sex: Male

DRUGS (2)
  1. GABAPENTIN. [Suspect]
     Active Substance: GABAPENTIN
     Indication: PRODUCT USED FOR UNKNOWN INDICATION
     Dosage: 600 MILLIGRAM DAILY; DOSE HAD BEEN REDUCED ON ADMISSION
     Route: 065
  2. GABAPENTIN. [Suspect]
     Active Substance: GABAPENTIN
     Indication: PRODUCT USED FOR UNKNOWN INDICATION
     Dosage: 1800 MILLIGRAM DAILY; 600MG THRICE DAILY (PRIOR TO ADMISSION)
     Route: 065

REACTIONS (5)
  - Overdose [Unknown]
  - Toxicity to various agents [Recovering/Resolving]
  - Myoclonus [Recovered/Resolved]
  - Mental status changes [Recovered/Resolved]
  - Neurotoxicity [Recovered/Resolved]
